FAERS Safety Report 7617239-4 (Version None)
Quarter: 2011Q3

REPORT INFORMATION
  Report Type: 
  Country: None (occurrence: None)
  Receive Date: 20110718
  Receipt Date: 20110713
  Transmission Date: 20111222
  Serious: Yes (Other)
  Sender: FDA-Public Use
  Company Number: IT-JNJFOC-20110705366

PATIENT
  Sex: Male

DRUGS (8)
  1. ZITHROMAX [Suspect]
     Indication: PYREXIA
     Route: 042
     Dates: start: 20110531, end: 20110531
  2. LEVOFLOXACIN [Suspect]
     Indication: PYREXIA
     Route: 042
     Dates: start: 20110526, end: 20110608
  3. MEROPENEM [Suspect]
     Indication: PYREXIA
     Route: 042
     Dates: start: 20110523, end: 20110606
  4. PIPERACILLIN AND TAZOBACTAM [Concomitant]
     Route: 065
     Dates: start: 20110514, end: 20110610
  5. VFEND [Concomitant]
     Route: 065
     Dates: start: 20110514, end: 20110610
  6. ZYVOX [Suspect]
     Indication: PYREXIA
     Route: 042
     Dates: start: 20110514, end: 20110606
  7. PRILOSEC [Suspect]
     Indication: PROPHYLAXIS
     Route: 048
     Dates: start: 20110514, end: 20110606
  8. ZOVIRAX [Suspect]
     Indication: PYREXIA
     Route: 042
     Dates: start: 20110514, end: 20110606

REACTIONS (2)
  - SKIN EXFOLIATION [None]
  - RASH GENERALISED [None]
